FAERS Safety Report 4469346-5 (Version None)
Quarter: 2004Q4

REPORT INFORMATION
  Report Type: 
  Country: None (occurrence: None)
  Receive Date: 20041008
  Receipt Date: 20040123
  Transmission Date: 20050328
  Serious: No
  Sender: FDA-Public Use
  Company Number: US-BRISTOL-MYERS SQUIBB COMPANY-12486924

PATIENT
  Age: 55 Year
  Sex: Female

DRUGS (2)
  1. AVAPRO [Suspect]
     Indication: HYPERTENSION
  2. PROTONIX [Concomitant]
     Dates: end: 20040101

REACTIONS (4)
  - MUSCLE CRAMP [None]
  - MYALGIA [None]
  - PAIN [None]
  - PARAESTHESIA [None]
